FAERS Safety Report 22658597 (Version 1)
Quarter: 2023Q2

REPORT INFORMATION
  Report Type: Spontaneous
  Country: TR (occurrence: TR)
  Receive Date: 20230630
  Receipt Date: 20230630
  Transmission Date: 20230722
  Serious: Yes (Hospitalization, Other)
  Sender: FDA-Public Use
  Company Number: TR-HALEON-TRCH2023EME030644

PATIENT

DRUGS (11)
  1. ACETAMINOPHEN [Suspect]
     Active Substance: ACETAMINOPHEN
     Indication: Product used for unknown indication
     Dosage: UNK, 3 BOTTLES
  2. IBUPROFEN [Suspect]
     Active Substance: IBUPROFEN
     Indication: Product used for unknown indication
     Dosage: UNK, 3 BOTTLES
  3. SODIUM HYPOCHLORITE [Suspect]
     Active Substance: SODIUM HYPOCHLORITE
     Indication: Product used for unknown indication
     Dosage: UNK
  4. ELEXACAFTOR [Concomitant]
     Active Substance: ELEXACAFTOR
     Indication: Product used for unknown indication
     Dosage: 2 DF, IN MORNING
     Dates: start: 202001, end: 202102
  5. ELEXACAFTOR [Concomitant]
     Active Substance: ELEXACAFTOR
     Dosage: 1 DF, IN MORNING
     Dates: start: 202107, end: 2021
  6. TEZACAFTOR [Concomitant]
     Active Substance: TEZACAFTOR
     Indication: Product used for unknown indication
     Dosage: 2 DF, IN MORNING
     Dates: start: 202001, end: 202102
  7. TEZACAFTOR [Concomitant]
     Active Substance: TEZACAFTOR
     Dosage: 1 DF, IN MORNING
     Dates: start: 202107, end: 2021
  8. IVACAFTOR [Concomitant]
     Active Substance: IVACAFTOR
     Indication: Product used for unknown indication
     Dosage: 2 DF, IN MORNING
     Dates: start: 202001, end: 202102
  9. IVACAFTOR [Concomitant]
     Active Substance: IVACAFTOR
     Dosage: 1 DF, IN MORNING
     Dates: start: 202107, end: 2021
  10. IVACAFTOR [Concomitant]
     Active Substance: IVACAFTOR
     Dosage: 150 MG AT NIGHT
     Dates: start: 202107, end: 2021
  11. FLUOXETINE [Concomitant]
     Active Substance: FLUOXETINE HYDROCHLORIDE
     Indication: Depression
     Dosage: UNK
     Dates: start: 202008

REACTIONS (1)
  - Suicide attempt [Recovering/Resolving]

NARRATIVE: CASE EVENT DATE: 20210201
